FAERS Safety Report 24345315 (Version 1)
Quarter: 2024Q3

REPORT INFORMATION
  Report Type: Other
  Country: US (occurrence: US)
  Receive Date: 20240920
  Receipt Date: 20240920
  Transmission Date: 20241016
  Serious: No
  Sender: MADRIGAL PHARMACEUTICALS
  Company Number: US-MADRIGAL PHARMACEUTICALS, INC-2024REZ1640

PATIENT

DRUGS (3)
  1. REZDIFFRA [Suspect]
     Active Substance: RESMETIROM
     Indication: Non-alcoholic steatohepatitis
     Dosage: 80 MILLIGRAM, QD
     Route: 048
     Dates: start: 2024
  2. REZDIFFRA [Suspect]
     Active Substance: RESMETIROM
     Dosage: 80 MILLIGRAM, QOD
     Route: 048
     Dates: start: 2024
  3. VITAMINS [Concomitant]
     Active Substance: VITAMINS
     Dosage: UNK
     Route: 048

REACTIONS (7)
  - Hepatic enzyme decreased [Unknown]
  - Initial insomnia [Unknown]
  - Dehydration [Unknown]
  - Diarrhoea [Unknown]
  - Flatulence [Unknown]
  - Dizziness [Unknown]
  - Inappropriate schedule of product administration [Unknown]

NARRATIVE: CASE EVENT DATE: 20240101
